FAERS Safety Report 4850596-0 (Version None)
Quarter: 2005Q4

REPORT INFORMATION
  Report Type: 
  Country: None (occurrence: None)
  Receive Date: 20051208
  Receipt Date: 20051125
  Transmission Date: 20060501
  Serious: Yes (Death, Other)
  Sender: FDA-Public Use
  Company Number: 2005160887

PATIENT
  Age: 19 Year
  Sex: Male

DRUGS (9)
  1. VIAGRA [Suspect]
     Indication: PULMONARY HYPERTENSION
     Dosage: 75 MG, ORAL
     Route: 048
     Dates: start: 20030701, end: 20040401
  2. FLOLAN [Suspect]
     Indication: PULMONARY HYPERTENSION
     Dates: start: 20021009, end: 20040401
  3. DOBUTAMINE HCL [Concomitant]
  4. ENALAPRIL MALEATE [Concomitant]
  5. LASIX [Concomitant]
  6. ALDACTONE [Concomitant]
  7. DIGOXIN [Concomitant]
  8. ACARDI (PIMOBENDAN) [Concomitant]
  9. WARFARIN SODIUM [Concomitant]

REACTIONS (1)
  - RIGHT VENTRICULAR FAILURE [None]
